FAERS Safety Report 7067408-X (Version None)
Quarter: 2010Q4

REPORT INFORMATION
  Report Type: 
  Country: None (occurrence: None)
  Receive Date: 20101026
  Receipt Date: 20101026
  Transmission Date: 20110411
  Serious: Yes (Hospitalization)
  Sender: FDA-Public Use
  Company Number: None

PATIENT
  Age: 52 Year
  Sex: Male
  Weight: 102.9665 kg

DRUGS (2)
  1. SEPTRA DS [Suspect]
     Indication: EAR INFECTION
     Dosage: 2 TABLETS TWICE A DAY PO
     Route: 048
     Dates: start: 20101019, end: 20101019
  2. LEVAQUIN [Suspect]
     Indication: EAR INFECTION
     Dosage: 1 1/2 TABLETS ONCE A DAY PO
     Route: 048
     Dates: start: 20101019, end: 20101019

REACTIONS (10)
  - DIZZINESS [None]
  - GENERALISED ERYTHEMA [None]
  - HYPERHIDROSIS [None]
  - INCOHERENT [None]
  - LIP SWELLING [None]
  - MYDRIASIS [None]
  - UNRESPONSIVE TO STIMULI [None]
  - URTICARIA [None]
  - VISUAL IMPAIRMENT [None]
  - VOMITING [None]
